FAERS Safety Report 7273086-7 (Version None)
Quarter: 2011Q1

REPORT INFORMATION
  Report Type: 
  Country: None (occurrence: None)
  Receive Date: 20110203
  Receipt Date: 20101222
  Transmission Date: 20110831
  Serious: Yes (Death, Hospitalization, Other)
  Sender: FDA-Public Use
  Company Number: US-BAXTER-2010BH012411

PATIENT
  Age: 68 Year
  Sex: Female
  Weight: 89 kg

DRUGS (20)
  1. HEPARIN SODIUM INJECTION [Suspect]
     Indication: HAEMODIALYSIS
     Route: 010
     Dates: start: 20070921, end: 20070921
  2. AVANDIA [Concomitant]
     Indication: PRODUCT USED FOR UNKNOWN INDICATION
     Route: 065
  3. ASPIRIN [Concomitant]
     Indication: PRODUCT USED FOR UNKNOWN INDICATION
     Route: 065
  4. DULCOLAX [Concomitant]
     Indication: PRODUCT USED FOR UNKNOWN INDICATION
     Route: 065
  5. VANCOMYCIN [Concomitant]
     Indication: SUPPLEMENTATION THERAPY
     Route: 042
     Dates: start: 20070701
  6. PANTOPRAZOLE [Concomitant]
     Indication: PRODUCT USED FOR UNKNOWN INDICATION
     Route: 065
  7. NEPHRO-VITE RX [Concomitant]
     Indication: PRODUCT USED FOR UNKNOWN INDICATION
     Route: 048
  8. HEPARIN SODIUM INJECTION [Suspect]
     Route: 010
     Dates: start: 20070924, end: 20070924
  9. HEPARIN SODIUM INJECTION [Suspect]
     Route: 010
     Dates: start: 20070928, end: 20070928
  10. HEPARIN SODIUM INJECTION [Suspect]
     Route: 010
     Dates: start: 20070924, end: 20070924
  11. LOPRESSOR [Concomitant]
     Indication: PRODUCT USED FOR UNKNOWN INDICATION
     Route: 065
  12. NOVOLOG [Concomitant]
     Indication: PRODUCT USED FOR UNKNOWN INDICATION
     Route: 065
  13. DARVOCET-N 100 [Concomitant]
     Indication: PRODUCT USED FOR UNKNOWN INDICATION
     Route: 065
  14. GENTAMICIN [Concomitant]
     Indication: SUPPLEMENTATION THERAPY
     Route: 042
     Dates: start: 20070701
  15. HEPARIN SODIUM INJECTION [Suspect]
     Route: 010
     Dates: start: 20070928, end: 20070928
  16. NEURONTIN [Concomitant]
     Indication: PRODUCT USED FOR UNKNOWN INDICATION
     Route: 065
  17. DOPAMINE [Concomitant]
     Indication: HYPOTENSION
     Route: 042
     Dates: start: 20070701
  18. EYE DROPS [Concomitant]
     Indication: PRODUCT USED FOR UNKNOWN INDICATION
     Route: 047
  19. NAPROSYN [Concomitant]
     Indication: PRODUCT USED FOR UNKNOWN INDICATION
     Route: 065
  20. HEPARIN SODIUM INJECTION [Suspect]
     Route: 010
     Dates: start: 20070921, end: 20070921

REACTIONS (11)
  - QUADRIPLEGIA [None]
  - ASTHENIA [None]
  - BLOOD PRESSURE DECREASED [None]
  - FLUID OVERLOAD [None]
  - HEART RATE DECREASED [None]
  - CERVICAL MYELOPATHY [None]
  - BLOOD PRESSURE IMMEASURABLE [None]
  - ACUTE RESPIRATORY FAILURE [None]
  - RENAL FAILURE CHRONIC [None]
  - UNRESPONSIVE TO STIMULI [None]
  - HYPERKALAEMIA [None]
